FAERS Safety Report 8600012-8 (Version None)
Quarter: 2012Q3

REPORT INFORMATION
  Report Type: 
  Country: None (occurrence: None)
  Receive Date: 20120816
  Receipt Date: 20120809
  Transmission Date: 20120928
  Serious: Yes (Other)
  Sender: FDA-Public Use
  Company Number: PR-ABBOTT-12P-131-0967199-00

PATIENT
  Sex: Male
  Weight: 49.94 kg

DRUGS (6)
  1. HUMIRA [Suspect]
     Indication: CROHN'S DISEASE
     Route: 058
     Dates: end: 20120808
  2. IMURAN [Concomitant]
     Indication: CROHN'S DISEASE
     Dosage: 2.5 TABLETS DAILY
     Route: 048
  3. IMODIUM [Concomitant]
     Indication: CROHN'S DISEASE
     Route: 048
  4. COREG [Concomitant]
     Indication: CONGESTIVE CARDIOMYOPATHY
     Route: 048
  5. IMODIUM [Concomitant]
     Indication: ILEOSTOMY
  6. VASOTEC [Concomitant]
     Indication: CONGESTIVE CARDIOMYOPATHY
     Route: 048

REACTIONS (3)
  - ABSCESS LIMB [None]
  - INGUINAL MASS [None]
  - SUBCUTANEOUS ABSCESS [None]
